FAERS Safety Report 8893347 (Version 1)
Quarter: 2012Q4

REPORT INFORMATION
  Report Type: 
  Country: US (occurrence: US)
  Receive Date: 20121107
  Receipt Date: 20121107
  Transmission Date: 20130627
  Serious: No
  Sender: FDA-Public Use
  Company Number: US-AMGEN-USASP2011053323

PATIENT
  Age: 53 Year
  Sex: Male

DRUGS (3)
  1. ENBREL [Suspect]
     Indication: RHEUMATOID ARTHRITIS
     Dosage: 50 mg, qwk
     Dates: start: 20111012
  2. ARAVA [Concomitant]
     Dates: start: 20051001
  3. METHOTREXATE [Concomitant]
     Dates: start: 20081001

REACTIONS (1)
  - Nasopharyngitis [Not Recovered/Not Resolved]
